FAERS Safety Report 6878018-9 (Version None)
Quarter: 2010Q3

REPORT INFORMATION
  Report Type: 
  Country: None (occurrence: None)
  Receive Date: 20100727
  Receipt Date: 20070712
  Transmission Date: 20110219
  Serious: Yes (Hospitalization, Other)
  Sender: FDA-Public Use
  Company Number: US-PFIZER INC-2006107179

PATIENT
  Sex: Female
  Weight: 74.8 kg

DRUGS (4)
  1. CELEBREX [Suspect]
     Indication: ARTHRITIS
     Dosage: 1 OR 2 DAILY
     Dates: start: 19990303
  2. VIOXX [Suspect]
     Indication: ARTHRITIS
     Dates: start: 20030507
  3. PREDNISONE [Concomitant]
     Dates: start: 20000121
  4. NITROTAB [Concomitant]
     Dates: start: 20030305

REACTIONS (3)
  - CARDIAC FAILURE CONGESTIVE [None]
  - CEREBROVASCULAR ACCIDENT [None]
  - MYOCARDIAL INFARCTION [None]
